FAERS Safety Report 16260744 (Version 1)
Quarter: 2019Q2

REPORT INFORMATION
  Report Type: Spontaneous
  Country: US (occurrence: US)
  Receive Date: 20190501
  Receipt Date: 20190501
  Transmission Date: 20190711
  Serious: Yes (Other)
  Sender: FDA-Public Use
  Company Number: US-PFIZER INC-2019169969

PATIENT
  Age: 49 Year
  Sex: Female
  Weight: 57.15 kg

DRUGS (2)
  1. THERMACARE ULTRA [Suspect]
     Active Substance: CAMPHOR (SYNTHETIC)\CAPSICUM OLEORESIN\MENTHOL\METHYL SALICYLATE
     Indication: BACK PAIN
     Dosage: UNK, AS NEEDED
     Dates: start: 20190415, end: 20190415
  2. CENTRUM [MINERALS NOS;VITAMINS NOS] [Concomitant]

REACTIONS (2)
  - Feeling abnormal [Recovered/Resolved]
  - Burning sensation [Recovered/Resolved]

NARRATIVE: CASE EVENT DATE: 20190415
